FAERS Safety Report 21442618 (Version 2)
Quarter: 2022Q4

REPORT INFORMATION
  Report Type: Report from Study
  Country: FI (occurrence: FI)
  Receive Date: 20221012
  Receipt Date: 20221209
  Transmission Date: 20230112
  Serious: Yes (Death, Life-Threatening, Hospitalization, Disabling, Other)
  Sender: FDA-Public Use
  Company Number: FI-CELLTRION HEALTHCARE HUNGARY KFT-2022FI015830

PATIENT
  Age: 69 Year
  Sex: Female
  Weight: 55.9 kg

DRUGS (13)
  1. LENALIDOMIDE [Suspect]
     Active Substance: LENALIDOMIDE
     Indication: Follicular lymphoma
     Dosage: 20 MG DAILY, DAYS 1 TO 21 FOR CYCLES 1 TO 12); LAST DOSE PRIOR NEUTROPENIC INFECTION
     Route: 048
  2. LENALIDOMIDE [Suspect]
     Active Substance: LENALIDOMIDE
     Dosage: 20 MG DAILY, DAYS 1 TO 21 FOR CYCLES 1 TO 12); LAST DOSE PRIOR TO EVENT NOROVIRUS INFECTION
     Route: 048
     Dates: start: 20220901
  3. LENALIDOMIDE [Suspect]
     Active Substance: LENALIDOMIDE
     Dosage: 20 MG DAILY, (DAYS 1 TO 21 FOR CYCLES 1 TO 12)
     Route: 048
     Dates: start: 20220421
  4. LENALIDOMIDE [Suspect]
     Active Substance: LENALIDOMIDE
     Route: 048
     Dates: start: 20220831
  5. RITUXIMAB [Suspect]
     Active Substance: RITUXIMAB
     Indication: Follicular lymphoma
     Dosage: 600 MG, (WEEKLY FOR CYCLE 1 AND THEN DAY 1 FOR CYCLES 2 TO 5); PRIOR THE EVENT NOROVIRUS INFECTION
     Route: 042
     Dates: start: 20220811
  6. RITUXIMAB [Suspect]
     Active Substance: RITUXIMAB
     Dosage: 600 MG, (WEEKLY FOR CYCLE 1 AND THEN DAY 1 FOR CYCLES 2 TO 5)
     Route: 042
     Dates: start: 20220422
  7. RITUXIMAB [Suspect]
     Active Substance: RITUXIMAB
     Dosage: 600 MG, (WEEKLY FOR CYCLE 1 AND THEN DAY 1 FOR CYCLES 2 TO 5); LAST DOSE PRIOR NEUTROPENIC INFECTION
     Route: 042
  8. TAFASITAMAB [Suspect]
     Active Substance: TAFASITAMAB
     Indication: Follicular lymphoma
     Dosage: 600 MG, (WEEKLY FOR CYCLES 1 TO 3 AND DAYS 1, 15 FOR CYCLES 4 TO 12)
     Route: 042
     Dates: start: 20220421
  9. TAFASITAMAB [Suspect]
     Active Substance: TAFASITAMAB
     Dosage: 600 MG, WEEKLY  FOR CYCLES 1 TO 3 AND DAYS 1, 15 FOR CYCLES 4 TO 12); LAST DOSE PRIOR TO NEUTROPENIC
     Route: 042
  10. TAFASITAMAB [Suspect]
     Active Substance: TAFASITAMAB
     Dosage: 600 MG, WEEKLY  FOR CYCLES 1 TO 3 AND DAYS 1, 15 FOR CYCLES 4 TO 12); LAST DOSE PRIOR EVENT NOROVIRU
     Route: 042
     Dates: start: 20220825
  11. TAFASITAMAB [Suspect]
     Active Substance: TAFASITAMAB
     Dosage: 680 MG, (WEEKLY FOR CYCLES 1 TO 3 AND DAYS 1, 15 FOR CYCLES 4 TO 12)
     Route: 042
     Dates: start: 20220421
  12. TAFASITAMAB [Suspect]
     Active Substance: TAFASITAMAB
     Dosage: 680 MG, (WEEKLY FOR CYCLES 1 TO 3 AND DAYS 1, 15 FOR CYCLES 4 TO 12)
     Route: 042
     Dates: start: 20220825
  13. TAFASITAMAB [Suspect]
     Active Substance: TAFASITAMAB
     Dosage: 680 MG, (WEEKLY FOR CYCLES 1 TO 3 AND DAYS 1, 15 FOR CYCLES 4 TO 12)
     Route: 042

REACTIONS (5)
  - Norovirus infection [Recovering/Resolving]
  - Neutropenic infection [Fatal]
  - Anal fungal infection [Unknown]
  - Pseudomonal sepsis [Unknown]
  - Anal ulcer [Recovering/Resolving]

NARRATIVE: CASE EVENT DATE: 20220901
